FAERS Safety Report 6568996-X (Version None)
Quarter: 2010Q1

REPORT INFORMATION
  Report Type: 
  Country: None (occurrence: None)
  Receive Date: 20100203
  Receipt Date: 20100127
  Transmission Date: 20100710
  Serious: Yes (Death)
  Sender: FDA-Public Use
  Company Number: GXKR2010ES01247

PATIENT
  Age: 59 Year
  Sex: Female

DRUGS (4)
  1. MYCOPHENOLATE MOFETIL (NGX) [Suspect]
     Indication: DERMATOMYOSITIS
     Dosage: 1 G, Q8H
     Route: 065
  2. PREDNISONE TAB [Suspect]
     Indication: DERMATOMYOSITIS
     Dosage: 50 MG/DAY
     Route: 065
  3. TACROLIMUS [Suspect]
     Indication: DERMATOMYOSITIS
     Dosage: 2 MG, Q12H
     Route: 065
  4. IMMU-G [Concomitant]
     Indication: DERMATOMYOSITIS
     Dosage: 0.4 G/KG/DAY
     Route: 042

REACTIONS (7)
  - HEPATIC FAILURE [None]
  - HEPATOSPLENOMEGALY [None]
  - LYMPHOMA [None]
  - NIGHT SWEATS [None]
  - PYREXIA [None]
  - RETROPERITONEAL LYMPHADENOPATHY [None]
  - STAPHYLOCOCCAL SEPSIS [None]
